FAERS Safety Report 18425795 (Version 1)
Quarter: 2020Q4

REPORT INFORMATION
  Report Type: Spontaneous
  Country: US (occurrence: US)
  Receive Date: 20201026
  Receipt Date: 20201026
  Transmission Date: 20210114
  Serious: No
  Sender: FDA-Public Use
  Company Number: US-GE HEALTHCARE LIFE SCIENCES-2020CSU003140

PATIENT
  Age: 33 Year
  Sex: Male
  Weight: 81.63 kg

DRUGS (5)
  1. OMNIPAQUE [Suspect]
     Active Substance: IOHEXOL
     Indication: DIARRHOEA
  2. OMNIPAQUE [Suspect]
     Active Substance: IOHEXOL
     Indication: NAUSEA
  3. OMNIPAQUE [Suspect]
     Active Substance: IOHEXOL
     Indication: ABDOMINAL PAIN
  4. OMNIPAQUE [Suspect]
     Active Substance: IOHEXOL
     Indication: VOMITING
  5. OMNIPAQUE [Suspect]
     Active Substance: IOHEXOL
     Indication: COMPUTERISED TOMOGRAM INTESTINE
     Dosage: 90 ML, SINGLE
     Route: 065
     Dates: start: 20200717, end: 20200717

REACTIONS (5)
  - Dyspnoea [Recovered/Resolved]
  - Urticaria [Recovered/Resolved]
  - Flank pain [Recovered/Resolved]
  - Pruritus [Recovered/Resolved]
  - Chest discomfort [Recovered/Resolved]

NARRATIVE: CASE EVENT DATE: 20200717
